FAERS Safety Report 7986226-9 (Version None)
Quarter: 2011Q4

REPORT INFORMATION
  Report Type: 
  Country: None (occurrence: None)
  Receive Date: 20111216
  Receipt Date: 20111208
  Transmission Date: 20120403
  Serious: Yes (Other)
  Sender: FDA-Public Use
  Company Number: FR-VIIV HEALTHCARE LIMITED-B0768357A

PATIENT
  Age: 60 Year
  Sex: Male

DRUGS (4)
  1. NORVIR [Concomitant]
     Indication: HIV INFECTION
     Route: 065
  2. ISENTRESS [Concomitant]
     Indication: HIV INFECTION
     Route: 065
  3. PREZISTA [Concomitant]
     Indication: HIV INFECTION
     Route: 065
  4. MARAVIROC [Suspect]
     Indication: HIV INFECTION
     Route: 065

REACTIONS (2)
  - AGGRESSION [None]
  - SUICIDAL IDEATION [None]
